FAERS Safety Report 10506819 (Version 1)
Quarter: 2014Q4

REPORT INFORMATION
  Report Type: Spontaneous
  Country: US (occurrence: None)
  Receive Date: 20141008
  Receipt Date: 20141008
  Transmission Date: 20150528
  Serious: No
  Sender: FDA-Public Use
  Company Number: None

PATIENT
  Age: 50 Year
  Sex: Female

DRUGS (8)
  1. ONDANSETRON [Concomitant]
     Active Substance: ONDANSETRON
  2. OXYCODONE [Concomitant]
     Active Substance: OXYCODONE
  3. ANASTROZOLE. [Concomitant]
     Active Substance: ANASTROZOLE
  4. AFINITOR [Suspect]
     Active Substance: EVEROLIMUS
     Indication: NEOPLASM MALIGNANT
     Route: 048
     Dates: start: 20140917
  5. PROCHLORPERAZINE. [Concomitant]
     Active Substance: PROCHLORPERAZINE
  6. LEVOFLOXACIN. [Concomitant]
     Active Substance: LEVOFLOXACIN
  7. TRAZODONE [Concomitant]
     Active Substance: TRAZODONE HYDROCHLORIDE
  8. AROMASIN [Concomitant]
     Active Substance: EXEMESTANE

REACTIONS (3)
  - Nausea [None]
  - Constipation [None]
  - Stomatitis [None]

NARRATIVE: CASE EVENT DATE: 20140917
